FAERS Safety Report 5923643-2 (Version None)
Quarter: 2008Q3

REPORT INFORMATION
  Report Type: 
  Country: None (occurrence: None)
  Receive Date: 20080909
  Receipt Date: 20080123
  Transmission Date: 20090109
  Serious: Yes (Hospitalization)
  Sender: FDA-Public Use
  Company Number: 163-20785-08011315

PATIENT
  Age: 48 Year
  Sex: Female
  Weight: 100 kg

DRUGS (29)
  1. THALOMID [Suspect]
     Indication: MULTIPLE MYELOMA
     Dosage: 50 MG, QHS, ORAL : 200 MG, ORAL
     Route: 048
     Dates: start: 20040713
  2. DEXAMETHASONE [Suspect]
     Indication: MULTIPLE MYELOMA
     Dosage: 4 MG, 5 TABLETS X4 DAYS Q28D, ORAL : 40 MG
     Route: 048
     Dates: start: 20040713
  3. VELCADE [Suspect]
     Indication: MULTIPLE MYELOMA
     Dosage: 1 MG/M2
     Dates: end: 20060623
  4. VELCADE [Suspect]
     Indication: MULTIPLE MYELOMA
     Dosage: 1 MG/M2
     Dates: start: 20040710
  5. CISPLATIN [Suspect]
     Indication: MULTIPLE MYELOMA
     Dosage: 10 MG/M2 : 7.5 MG/M2
     Dates: end: 20050507
  6. CISPLATIN [Suspect]
     Indication: MULTIPLE MYELOMA
     Dosage: 10 MG/M2 : 7.5 MG/M2
     Dates: start: 20040713
  7. ADRIAMYCIN PFS [Suspect]
     Indication: MULTIPLE MYELOMA
     Dosage: 10 MG/M2 : 7.5 MG/M2
     Dates: end: 20050507
  8. ADRIAMYCIN PFS [Suspect]
     Indication: MULTIPLE MYELOMA
     Dosage: 10 MG/M2 : 7.5 MG/M2
     Dates: start: 20040713
  9. CYCLOPHOSPHAMIDE [Suspect]
     Indication: MULTIPLE MYELOMA
     Dosage: 400 MG/M2 : 300 MG/M2
     Dates: end: 20050507
  10. CYCLOPHOSPHAMIDE [Suspect]
     Indication: MULTIPLE MYELOMA
     Dosage: 400 MG/M2 : 300 MG/M2
     Dates: start: 20040713
  11. ETOPOSIDE [Suspect]
     Indication: MULTIPLE MYELOMA
     Dosage: 40 MG/M2 : 30 MG/M2
     Dates: end: 20050507
  12. ETOPOSIDE [Suspect]
     Indication: MULTIPLE MYELOMA
     Dosage: 40 MG/M2 : 30 MG/M2
     Dates: start: 20040713
  13. MELPHALAN (MELPHALAN) [Suspect]
     Indication: MULTIPLE MYELOMA
     Dosage: 200 MG/M2
     Dates: end: 20041214
  14. MELPHALAN (MELPHALAN) [Suspect]
     Indication: MULTIPLE MYELOMA
     Dosage: 200 MG/M2
     Dates: start: 20040922
  15. LOVENOX [Concomitant]
  16. ACYCLOVIR [Concomitant]
  17. DIFLUCAN [Concomitant]
  18. FOLIC ACID (FOLIC ACID) (TABLETS) [Concomitant]
  19. RANITIDINE (RANITIDINE) (CAPSULES) [Concomitant]
  20. OXYCODONE HCL (OXYCODONE HYDROCHLORIDE) (TABLETS) [Concomitant]
  21. PREMPRO (PROVELLA-14) (TABLETS) [Concomitant]
  22. MULTIVITAMINS (MULTIVITAMINS) (TABLETS) [Concomitant]
  23. SENNA (SENNA) (TABLETS) [Concomitant]
  24. DURAGESIC (FENTANYL) (POULTICE OR PATCH) [Concomitant]
  25. LEVAQUIN [Concomitant]
  26. PROCRIT (ERYTHROPOIETIN) (SOLUTION) [Concomitant]
  27. TYLENOL EXTRA STRENGTH (PARACETAMOL) (TABLETS) [Concomitant]
  28. IMODIUM [Concomitant]
  29. IMMUNE GLOBULIN (IMMUNOGLOBULIN) (INJECTION) [Concomitant]

REACTIONS (1)
  - PULMONARY EMBOLISM [None]
